FAERS Safety Report 4432169-7 (Version None)
Quarter: 2004Q3

REPORT INFORMATION
  Report Type: 
  Country: None (occurrence: None)
  Receive Date: 20040819
  Receipt Date: 20040811
  Transmission Date: 20050211
  Serious: Yes (Hospitalization)
  Sender: FDA-Public Use
  Company Number: 2004228158US

PATIENT
  Age: 31 Year
  Sex: Male

DRUGS (2)
  1. SOLU-MEDROL [Suspect]
     Indication: CROHN'S DISEASE
     Dosage: 40 MG, IV
     Route: 042
     Dates: start: 20040716
  2. REMICADE [Suspect]
     Indication: CROHN'S DISEASE
     Dosage: 361 MG, IV
     Route: 042
     Dates: start: 20040716

REACTIONS (9)
  - CHILLS [None]
  - DIZZINESS [None]
  - DYSGEUSIA [None]
  - DYSPNOEA [None]
  - DYSURIA [None]
  - NAUSEA [None]
  - PYREXIA [None]
  - RENAL DISORDER [None]
  - URINARY TRACT INFECTION [None]
